FAERS Safety Report 6095122-6 (Version None)
Quarter: 2009Q1

REPORT INFORMATION
  Report Type: 
  Country: None (occurrence: None)
  Receive Date: 20090227
  Receipt Date: 20080912
  Transmission Date: 20090719
  Serious: No
  Sender: FDA-Public Use
  Company Number: A0705193A

PATIENT
  Age: 39 Year
  Sex: Female
  Weight: 59.1 kg

DRUGS (5)
  1. LAMICTAL [Suspect]
     Indication: BIPOLAR DISORDER
     Dosage: 200MG PER DAY
     Route: 048
     Dates: start: 20061201
  2. RISPERDAL [Suspect]
     Route: 065
  3. LEVOXYL [Suspect]
     Route: 065
  4. INVEGA [Concomitant]
     Indication: DRUG USE FOR UNKNOWN INDICATION
  5. SYNTHROID [Concomitant]
     Indication: THYROID DISORDER

REACTIONS (2)
  - SOMNOLENCE [None]
  - WEIGHT INCREASED [None]
